FAERS Safety Report 6068998-6 (Version None)
Quarter: 2009Q1

REPORT INFORMATION
  Report Type: 
  Country: None (occurrence: None)
  Receive Date: 20090203
  Receipt Date: 20090114
  Transmission Date: 20090719
  Serious: Yes (Other)
  Sender: FDA-Public Use
  Company Number: 6046685

PATIENT
  Sex: Female

DRUGS (4)
  1. LEVOTHYROXINE SODIUM [Suspect]
     Indication: THYROID DISORDER
     Dosage: 74 MCG (75 MCG 1 IN  1 D
     Dates: start: 20070601
  2. ZOCOR [Concomitant]
  3. AMLOR (10 MG) (ALMODIPINE) (BESILATE) [Concomitant]
  4. PLAVIX [Concomitant]

REACTIONS (2)
  - DENTAL CARIES [None]
  - TOOTH EXTRACTION [None]
